FAERS Safety Report 22941957 (Version 2)
Quarter: 2024Q2

REPORT INFORMATION
  Report Type: Spontaneous
  Country: JP (occurrence: JP)
  Receive Date: 20230914
  Receipt Date: 20240426
  Transmission Date: 20240716
  Serious: Yes (Other)
  Sender: FDA-Public Use
  Company Number: JP-ALXN-A202311659AA

PATIENT
  Age: 37 Year
  Sex: Male
  Weight: 83 kg

DRUGS (2)
  1. SOLIRIS [Suspect]
     Active Substance: ECULIZUMAB
     Indication: Paroxysmal nocturnal haemoglobinuria
     Dosage: 600 MILLIGRAM, QW
     Route: 042
     Dates: start: 20150722, end: 20150817
  2. SOLIRIS [Suspect]
     Active Substance: ECULIZUMAB
     Dosage: 900 MILLIGRAM, Q2W
     Route: 042
     Dates: start: 20150824

REACTIONS (1)
  - Cardiac dysfunction [Unknown]

NARRATIVE: CASE EVENT DATE: 20230907
